FAERS Safety Report 11655184 (Version 1)
Quarter: 2015Q4

REPORT INFORMATION
  Report Type: Spontaneous
  Country: US (occurrence: US)
  Receive Date: 20151023
  Receipt Date: 20151023
  Transmission Date: 20160304
  Serious: Yes (Hospitalization, Other)
  Sender: FDA-Public Use
  Company Number: US-BAYER-2015-445154

PATIENT
  Age: 68 Year
  Sex: Female

DRUGS (2)
  1. GADAVIST [Suspect]
     Active Substance: GADOBUTROL
     Indication: NUCLEAR MAGNETIC RESONANCE IMAGING BRAIN
     Dosage: 10 ML, ONCE
     Route: 042
     Dates: start: 20151001, end: 20151001
  2. GADAVIST [Suspect]
     Active Substance: GADOBUTROL
     Indication: RETINAL ARTERY OCCLUSION

REACTIONS (5)
  - Bone pain [None]
  - Arthralgia [None]
  - Secretion discharge [None]
  - Nausea [None]
  - Pneumonia aspiration [None]

NARRATIVE: CASE EVENT DATE: 20151001
